FAERS Safety Report 8185078-4 (Version None)
Quarter: 2012Q1

REPORT INFORMATION
  Report Type: 
  Country: None (occurrence: None)
  Receive Date: 20120305
  Receipt Date: 20120223
  Transmission Date: 20120608
  Serious: Yes (Other)
  Sender: FDA-Public Use
  Company Number: US-ASTRAZENECA-2011SE74344

PATIENT
  Age: 62 Year
  Sex: Male

DRUGS (12)
  1. BRILINTA [Suspect]
     Indication: ACUTE CORONARY SYNDROME
     Route: 048
     Dates: start: 20111202, end: 20111203
  2. LANTUS [Concomitant]
     Route: 058
  3. SINGULAIR [Concomitant]
  4. CRESTOR [Concomitant]
     Route: 048
  5. ASPIRIN [Concomitant]
  6. COMBIVENT [Concomitant]
     Dosage: 2 PUFFS QID
  7. TOPROL-XL [Concomitant]
     Route: 048
  8. BRILINTA [Suspect]
     Indication: PERCUTANEOUS CORONARY INTERVENTION
     Route: 048
     Dates: start: 20111202, end: 20111203
  9. MESTINON [Concomitant]
  10. OMEPRAZOLE [Concomitant]
     Route: 048
  11. MYCOPHENOLATE MOFETIL (CELLCEPT) [Concomitant]
     Dosage: 1000 MG IN THE AM, 500 MG IN THE PM
  12. ADVAIR DISKUS 100/50 [Concomitant]
     Dosage: 1 PUFF DAILY

REACTIONS (16)
  - DRUG DOSE OMISSION [None]
  - COUGH [None]
  - CHRONIC OBSTRUCTIVE PULMONARY DISEASE [None]
  - NAUSEA [None]
  - MYASTHENIA GRAVIS [None]
  - VASCULAR PSEUDOANEURYSM [None]
  - INCISION SITE HAEMORRHAGE [None]
  - TYPE 2 DIABETES MELLITUS [None]
  - DYSPEPSIA [None]
  - DYSPHAGIA [None]
  - FATIGUE [None]
  - ASTHMA [None]
  - HYPERLIPIDAEMIA [None]
  - MUSCULAR WEAKNESS [None]
  - DYSPNOEA EXERTIONAL [None]
  - ASTHENIA [None]
